FAERS Safety Report 4933091-X (Version None)
Quarter: 2006Q1

REPORT INFORMATION
  Report Type: 
  Country: None (occurrence: None)
  Receive Date: 20060106
  Receipt Date: 20050801
  Transmission Date: 20060701
  Serious: No
  Sender: FDA-Public Use
  Company Number: 200511538BWH

PATIENT
  Age: 59 Year
  Sex: Male
  Weight: 90.7194 kg

DRUGS (6)
  1. LEVITRA [Suspect]
     Indication: ERECTILE DYSFUNCTION
     Dosage: SEE IMAGE
     Route: 048
  2. NEXIUM [Concomitant]
  3. VALIUM [Concomitant]
  4. DURAGESIC-100 [Concomitant]
  5. VASOTEC RPD [Concomitant]
  6. TYLOX [Concomitant]

REACTIONS (3)
  - ERECTILE DYSFUNCTION [None]
  - HEADACHE [None]
  - THERAPEUTIC RESPONSE DELAYED [None]
